FAERS Safety Report 5151224-X (Version None)
Quarter: 2006Q4

REPORT INFORMATION
  Report Type: 
  Country: None (occurrence: None)
  Receive Date: 20061115
  Receipt Date: 20060815
  Transmission Date: 20070319
  Serious: Yes (Hospitalization, Other)
  Sender: FDA-Public Use
  Company Number: US-BAYER-200615114BWH

PATIENT
  Age: 84 Year
  Sex: Female
  Weight: 57 kg

DRUGS (12)
  1. AVELOX [Suspect]
     Indication: URINARY TRACT INFECTION
     Dosage: TOTAL DAILY DOSE: 400 MG  UNIT DOSE: 400 MG
     Route: 042
     Dates: start: 20060728, end: 20060801
  2. ARICEPT [Concomitant]
     Dosage: TOTAL DAILY DOSE: 10 MG  UNIT DOSE: 10 MG
     Route: 048
  3. ZOLOFT [Concomitant]
     Dosage: TOTAL DAILY DOSE: 25 MG  UNIT DOSE: 25 MG
     Route: 048
  4. COZAAR [Concomitant]
     Dosage: TOTAL DAILY DOSE: 25 MG  UNIT DOSE: 25 MG
     Route: 048
  5. ACTONEL [Concomitant]
  6. TIMOTIC [Concomitant]
     Route: 047
  7. OS-CAL W/ D VITAMIN/CALCIUM SUPPLEMENT [Concomitant]
     Route: 048
  8. CENTRUM SILVER MULTIVITAMINS [Concomitant]
     Route: 048
  9. RANITIDINE [Concomitant]
     Indication: GASTRIC DISORDER
     Dosage: TOTAL DAILY DOSE: 300 MG
  10. CELEBREX [Concomitant]
     Dosage: TOTAL DAILY DOSE: 200 MG
  11. ASPIRIN [Concomitant]
     Dosage: TOTAL DAILY DOSE: 81 MG  UNIT DOSE: 81 MG
     Route: 048
  12. VITAMIN E 400 [Concomitant]
     Dosage: TOTAL DAILY DOSE: 400 IU  UNIT DOSE: 400 IU

REACTIONS (12)
  - ABASIA [None]
  - ANXIETY [None]
  - BREATH HOLDING [None]
  - COGNITIVE DISORDER [None]
  - COUGH [None]
  - DELIRIUM [None]
  - DEPRESSED LEVEL OF CONSCIOUSNESS [None]
  - DYSPHAGIA [None]
  - DYSPNOEA [None]
  - HALLUCINATION [None]
  - RENAL FAILURE [None]
  - TREMOR [None]
